FAERS Safety Report 8440548-6 (Version None)
Quarter: 2012Q2

REPORT INFORMATION
  Report Type: 
  Country: None (occurrence: None)
  Receive Date: 20120615
  Receipt Date: 20120605
  Transmission Date: 20120825
  Serious: Yes (Death, Other)
  Sender: FDA-Public Use
  Company Number: US-BRISTOL-MYERS SQUIBB COMPANY-16056350

PATIENT
  Age: 46 Year
  Sex: Female

DRUGS (1)
  1. POTASSIUM CHLORIDE [Suspect]
     Dosage: SLOW RELEASE TABS

REACTIONS (5)
  - CARDIAC FAILURE [None]
  - COMA [None]
  - OVERDOSE [None]
  - BLOOD POTASSIUM INCREASED [None]
  - VENTRICULAR TACHYCARDIA [None]
